FAERS Safety Report 10338064 (Version 1)
Quarter: 2014Q3

REPORT INFORMATION
  Report Type: Spontaneous
  Country: US (occurrence: None)
  Receive Date: 20140722
  Receipt Date: 20140722
  Transmission Date: 20150326
  Serious: No
  Sender: FDA-Public Use
  Company Number: None

PATIENT
  Age: 49 Year
  Sex: Female

DRUGS (1)
  1. DANAZOL. [Suspect]
     Active Substance: DANAZOL

REACTIONS (3)
  - Weight increased [None]
  - Unevaluable event [None]
  - Mood swings [None]
